FAERS Safety Report 6526247-6 (Version None)
Quarter: 2009Q4

REPORT INFORMATION
  Report Type: 
  Country: None (occurrence: None)
  Receive Date: 20091228
  Receipt Date: 20091214
  Transmission Date: 20100525
  Serious: Yes (Other)
  Sender: FDA-Public Use
  Company Number: 2009S1008974

PATIENT
  Sex: Female

DRUGS (2)
  1. PHOSPHOSODA FLAVOR NOT SPECIFIED [Suspect]
     Indication: COLONOSCOPY
     Dosage: 90 ML;TOTAL;PO
     Route: 048
     Dates: start: 20071211, end: 20071211
  2. LISINOPRIL [Concomitant]

REACTIONS (3)
  - NEPHROCALCINOSIS [None]
  - NEPHROPATHY [None]
  - RENAL FAILURE CHRONIC [None]
